FAERS Safety Report 5327610-1 (Version None)
Quarter: 2007Q2

REPORT INFORMATION
  Report Type: 
  Country: None (occurrence: None)
  Receive Date: 20070517
  Receipt Date: 20070511
  Transmission Date: 20071010
  Serious: Yes (Other)
  Sender: FDA-Public Use
  Company Number: FR-BRISTOL-MYERS SQUIBB COMPANY-13780960

PATIENT
  Age: 50 Year
  Sex: Female

DRUGS (1)
  1. COAPROVEL TABS [Suspect]
     Route: 048
     Dates: start: 20070101, end: 20070101

REACTIONS (4)
  - DEHYDRATION [None]
  - RENAL FAILURE ACUTE [None]
  - URINARY TRACT INFECTION [None]
  - WEIGHT DECREASED [None]
